FAERS Safety Report 11853439 (Version 1)
Quarter: 2015Q4

REPORT INFORMATION
  Report Type: Spontaneous
  Country: GB (occurrence: GB)
  Receive Date: 20151218
  Receipt Date: 20151218
  Transmission Date: 20160305
  Serious: Yes (Hospitalization, Other)
  Sender: FDA-Public Use
  Company Number: GB-BIOMARINAP-GB-2015-108418

PATIENT
  Age: 12 Year
  Sex: Female

DRUGS (1)
  1. ALDURAZYME [Suspect]
     Active Substance: LARONIDASE
     Indication: MUCOPOLYSACCHARIDOSIS I
     Dosage: UNK
     Route: 042

REACTIONS (7)
  - Abdominal pain upper [Unknown]
  - Carpal tunnel syndrome [Unknown]
  - Pain [Recovered/Resolved]
  - Anxiety [Unknown]
  - Dysmenorrhoea [Unknown]
  - Haemorrhage [Recovered/Resolved]
  - Off label use [Unknown]
